FAERS Safety Report 10713575 (Version 2)
Quarter: 2015Q2

REPORT INFORMATION
  Report Type: Spontaneous
  Country: IT (occurrence: IT)
  Receive Date: 20150115
  Receipt Date: 20150417
  Transmission Date: 20150821
  Serious: Yes (Other)
  Sender: FDA-Public Use
  Company Number: IT-PFIZER INC-2015014704

PATIENT
  Age: 21 Year
  Sex: Female

DRUGS (2)
  1. LYRICA [Suspect]
     Active Substance: PREGABALIN
     Dosage: 2 DF, TOTAL
     Route: 048
     Dates: start: 20150109, end: 20150109
  2. BROMAZEPAM [Suspect]
     Active Substance: BROMAZEPAM
     Dosage: 10 ML, TOTAL
     Route: 048
     Dates: start: 20150109, end: 20150109

REACTIONS (4)
  - Somnolence [Recovering/Resolving]
  - Bradycardia [Recovering/Resolving]
  - Vomiting [Recovering/Resolving]
  - Substance abuse [Recovering/Resolving]

NARRATIVE: CASE EVENT DATE: 20150109
